FAERS Safety Report 4906405-4 (Version None)
Quarter: 2006Q1

REPORT INFORMATION
  Report Type: 
  Country: None (occurrence: None)
  Receive Date: 20060209
  Receipt Date: 20060201
  Transmission Date: 20060701
  Serious: Yes (Hospitalization)
  Sender: FDA-Public Use
  Company Number: SE-GLAXOSMITHKLINE-B0408809A

PATIENT
  Age: 79 Year
  Sex: Male

DRUGS (5)
  1. ACETAMINOPHEN [Suspect]
     Dosage: 1000MG FOUR TIMES PER DAY
     Route: 048
  2. WARAN [Suspect]
     Indication: EMBOLISM
     Route: 048
     Dates: start: 19930101
  3. KININ [Concomitant]
     Route: 048
  4. LITHIONIT [Concomitant]
  5. ZOPIKLON [Concomitant]

REACTIONS (4)
  - HAEMATOMA [None]
  - OEDEMA PERIPHERAL [None]
  - PAIN [None]
  - PROTHROMBIN LEVEL DECREASED [None]
